FAERS Safety Report 7416982-X (Version None)
Quarter: 2011Q2

REPORT INFORMATION
  Report Type: 
  Country: None (occurrence: None)
  Receive Date: 20110407
  Receipt Date: 20110329
  Transmission Date: 20111010
  Serious: Yes (Other)
  Sender: FDA-Public Use
  Company Number: B0710663A

PATIENT
  Sex: Female

DRUGS (4)
  1. GRANULOCYTE COL.STIM.FACT [Concomitant]
  2. MELPHALAN (FORMULATION UNKNOWN) (GENERIC) (MELPHALAN) [Suspect]
     Indication: CARDIAC AMYLOIDOSIS
     Dosage: CYCLIC
  3. DEXAMETHASONE [Suspect]
  4. BORTEZOMIB [Suspect]

REACTIONS (2)
  - HEPATOTOXICITY [None]
  - MUCOSAL INFLAMMATION [None]
